FAERS Safety Report 17960467 (Version 5)
Quarter: 2020Q4

REPORT INFORMATION
  Report Type: Spontaneous
  Country: US (occurrence: US)
  Receive Date: 20200630
  Receipt Date: 20201215
  Transmission Date: 20210113
  Serious: Yes (Death, Hospitalization)
  Sender: FDA-Public Use
  Company Number: US-IMMUNOMEDICS, INC.-2020IMMU000441

PATIENT
  Age: 54 Year
  Sex: Female

DRUGS (2)
  1. TRODELVY [Suspect]
     Active Substance: SACITUZUMAB GOVITECAN-HZIY
     Indication: TRIPLE NEGATIVE BREAST CANCER
     Dosage: 1090 MG
     Route: 065
     Dates: start: 20200527, end: 20200527
  2. TRODELVY [Suspect]
     Active Substance: SACITUZUMAB GOVITECAN-HZIY
     Dosage: 1090 MG
     Route: 065
     Dates: start: 20200603, end: 20200603

REACTIONS (2)
  - Neutropenic colitis [Fatal]
  - Septic shock [Fatal]

NARRATIVE: CASE EVENT DATE: 20200606
